FAERS Safety Report 17098327 (Version 1)
Quarter: 2019Q4

REPORT INFORMATION
  Report Type: Spontaneous
  Country: US (occurrence: US)
  Receive Date: 20191202
  Receipt Date: 20191202
  Transmission Date: 20200122
  Serious: Yes (Hospitalization, Other)
  Sender: FDA-Public Use
  Company Number: US-BAYER-2019-209906

PATIENT
  Sex: Male

DRUGS (2)
  1. LEVAQUIN [Suspect]
     Active Substance: LEVOFLOXACIN
     Dosage: UNK
  2. CIPROFLOXACIN. [Suspect]
     Active Substance: CIPROFLOXACIN
     Indication: SINUSITIS
     Dosage: UNK
     Dates: start: 2013

REACTIONS (8)
  - Neuropathy peripheral [None]
  - Myocardial fibrosis [None]
  - Hypersensitivity [None]
  - Aortic aneurysm [Recovering/Resolving]
  - Mitochondrial toxicity [None]
  - Unevaluable event [None]
  - Heart rate increased [None]
  - Tendonitis [None]
